FAERS Safety Report 4874379-0 (Version None)
Quarter: 2006Q1

REPORT INFORMATION
  Report Type: 
  Country: None (occurrence: None)
  Receive Date: 20060103
  Receipt Date: 20060103
  Transmission Date: 20060701
  Serious: No
  Sender: FDA-Public Use
  Company Number: None

PATIENT
  Age: 57 Year
  Sex: Female
  Weight: 63.9572 kg

DRUGS (2)
  1. METHYLPREDNISOLONE [Suspect]
     Indication: ARTHRALGIA
  2. METHYLPREDNISOLONE [Suspect]
     Indication: SWELLING

REACTIONS (2)
  - FLUSHING [None]
  - NAUSEA [None]
